FAERS Safety Report 24964069 (Version 2)
Quarter: 2025Q1

REPORT INFORMATION
  Report Type: Spontaneous
  Country: IN (occurrence: IN)
  Receive Date: 20250213
  Receipt Date: 20250221
  Transmission Date: 20250408
  Serious: Yes (Hospitalization, Other)
  Sender: ROCHE
  Company Number: IN-ROCHE-10000200601

PATIENT
  Age: 67 Year
  Sex: Male

DRUGS (2)
  1. AVASTIN [Suspect]
     Active Substance: BEVACIZUMAB
     Indication: Neuroendocrine cancer of the prostate metastatic
     Route: 040
     Dates: start: 20240517
  2. TECENTRIQ [Suspect]
     Active Substance: ATEZOLIZUMAB
     Indication: Neuroendocrine cancer of the prostate metastatic
     Route: 040
     Dates: start: 20240517

REACTIONS (7)
  - Back pain [Unknown]
  - Off label use [Unknown]
  - Dermal cyst [Unknown]
  - Lung neoplasm [Unknown]
  - Hepatic lesion [Unknown]
  - Central nervous system neoplasm [Unknown]
  - Ill-defined disorder [Unknown]

NARRATIVE: CASE EVENT DATE: 20240813
